FAERS Safety Report 7079358-3 (Version None)
Quarter: 2010Q4

REPORT INFORMATION
  Report Type: 
  Country: None (occurrence: None)
  Receive Date: 20101102
  Receipt Date: 20101028
  Transmission Date: 20110411
  Serious: Yes (Hospitalization)
  Sender: FDA-Public Use
  Company Number: JP-B.I. PHARMACEUTICALS,INC./RIDGEFIELD-2010-BP-11763NB

PATIENT
  Age: 5 Decade
  Sex: Male

DRUGS (4)
  1. MICOMBI COMBINATION [Suspect]
     Indication: HYPERTENSION
     Dosage: 1DF
     Route: 048
     Dates: start: 20100804, end: 20100927
  2. NORVASC [Concomitant]
     Indication: HYPERTENSION
     Dosage: 5 MG
     Dates: start: 20090602
  3. AMARYL [Concomitant]
     Indication: DIABETES MELLITUS
     Dosage: 2 DF
     Dates: start: 20090602
  4. URSO 250 [Concomitant]
     Indication: ALCOHOLIC LIVER DISEASE
     Dosage: 3 DF
     Dates: start: 20090602

REACTIONS (2)
  - GASTROINTESTINAL HAEMORRHAGE [None]
  - HEPATITIS ACUTE [None]
